FAERS Safety Report 16356008 (Version 2)
Quarter: 2019Q2

REPORT INFORMATION
  Report Type: Spontaneous
  Country: US (occurrence: US)
  Receive Date: 20190526
  Receipt Date: 20190607
  Transmission Date: 20190711
  Serious: No
  Sender: FDA-Public Use
  Company Number: US-JNJFOC-20190517538

PATIENT
  Sex: Female
  Weight: 63.5 kg

DRUGS (1)
  1. AXERT [Suspect]
     Active Substance: ALMOTRIPTAN MALATE
     Indication: MIGRAINE
     Dosage: AS REQUIRED
     Route: 048
     Dates: end: 2017

REACTIONS (3)
  - Sneezing [Unknown]
  - Logorrhoea [Unknown]
  - Product availability issue [Unknown]
